FAERS Safety Report 6820342-X (Version None)
Quarter: 2010Q3

REPORT INFORMATION
  Report Type: 
  Country: None (occurrence: None)
  Receive Date: 20100707
  Receipt Date: 20100623
  Transmission Date: 20110219
  Serious: Yes (Hospitalization, Disabling)
  Sender: FDA-Public Use
  Company Number: GB-TEVA-239878ISR

PATIENT
  Sex: Male

DRUGS (14)
  1. PREDNISOLONE [Suspect]
     Indication: PROSTATE CANCER METASTATIC
     Route: 048
     Dates: start: 20090210
  2. ABIRATERONE ACETATE/PLACEBO - BLINDED [Suspect]
     Indication: PROSTATE CANCER METASTATIC
     Route: 048
     Dates: start: 20090210, end: 20100406
  3. NULYTELY [Concomitant]
     Indication: CONSTIPATION
     Route: 048
     Dates: start: 20090201
  4. GOSERELIN [Concomitant]
     Indication: PROSTATE CANCER
     Dates: start: 20031101
  5. GOSERELIN [Concomitant]
     Route: 030
     Dates: start: 20090210
  6. DICLOFENAC SODIUM [Concomitant]
     Indication: GROIN PAIN
     Route: 048
     Dates: start: 20071101
  7. DICLOFENAC SODIUM [Concomitant]
     Indication: BACK PAIN
  8. MORPHINE SULFATE [Concomitant]
     Indication: GROIN PAIN
     Route: 048
     Dates: start: 20080101
  9. MORPHINE SULFATE [Concomitant]
     Indication: BACK PAIN
  10. MORPHINE SULFATE [Concomitant]
     Indication: CANCER PAIN
  11. AMOXICILLIN [Concomitant]
     Indication: PHARYNGITIS
     Route: 048
     Dates: start: 20090210
  12. MORPHINE SULFATE [Concomitant]
     Route: 048
     Dates: start: 20090201
  13. MORPHINE SULFATE [Concomitant]
  14. MORPHINE SULFATE [Concomitant]

REACTIONS (1)
  - CANCER PAIN [None]
